FAERS Safety Report 5112971-9 (Version None)
Quarter: 2006Q3

REPORT INFORMATION
  Report Type: 
  Country: None (occurrence: None)
  Receive Date: 20060920
  Receipt Date: 20060905
  Transmission Date: 20061208
  Serious: Yes (Death)
  Sender: FDA-Public Use
  Company Number: L06-USA-03582-01

PATIENT
  Age: 19 Year
  Sex: Male

DRUGS (4)
  1. CARBAMAZEPINE [Suspect]
     Dosage: 50 G ONCE PO
     Route: 048
  2. LEVOTHYROXINE SODIUM [Suspect]
     Dosage: 15 MG ONCE PO
     Route: 048
  3. TEMAZEPAM [Suspect]
  4. METOCLOPRAMIDE [Suspect]

REACTIONS (7)
  - CARDIAC ARREST [None]
  - COMA [None]
  - GRAND MAL CONVULSION [None]
  - HEART RATE INCREASED [None]
  - HYPOTENSION [None]
  - MULTIPLE DRUG OVERDOSE INTENTIONAL [None]
  - PULMONARY OEDEMA [None]
